FAERS Safety Report 4483687-7 (Version None)
Quarter: 2004Q4

REPORT INFORMATION
  Report Type: 
  Country: None (occurrence: None)
  Receive Date: 20041022
  Receipt Date: 20041022
  Transmission Date: 20050328
  Serious: Yes (Other)
  Sender: FDA-Public Use
  Company Number: None

PATIENT
  Age: 59 Year
  Sex: Male
  Weight: 75.2 kg

DRUGS (7)
  1. CYTARABINE [Suspect]
     Indication: ACUTE MYELOID LEUKAEMIA
     Dosage: 1,970 MG IV QD
     Route: 042
     Dates: start: 20041019
  2. CYTARABINE [Suspect]
     Indication: ACUTE MYELOID LEUKAEMIA
     Dosage: 1,970 MG IV QD
     Route: 042
     Dates: start: 20041021
  3. SIROLIMUS [Suspect]
     Dosage: 6 MG PO LOAD 2 MG PO
     Route: 048
     Dates: start: 20041019
  4. SIROLIMUS [Suspect]
     Dosage: 6 MG PO LOAD 2 MG PO
     Route: 048
     Dates: start: 20041020
  5. CEFAPIME [Concomitant]
  6. GENTAMYCIN [Concomitant]
  7. MITOZANTRONE \VP-16 [Concomitant]

REACTIONS (1)
  - ATAXIA [None]
